FAERS Safety Report 5884746-4 (Version None)
Quarter: 2008Q3

REPORT INFORMATION
  Report Type: 
  Country: None (occurrence: None)
  Receive Date: 20080912
  Receipt Date: 20080902
  Transmission Date: 20090109
  Serious: Yes (Hospitalization)
  Sender: FDA-Public Use
  Company Number: CFNP-392

PATIENT
  Age: 1 Year
  Sex: Male

DRUGS (1)
  1. MEIACT MS FINE GRANULES (CEFDITOREN PIVOXIL) [Suspect]
     Indication: OTITIS MEDIA
     Dosage: 80 MG ORALLY
     Route: 048

REACTIONS (2)
  - CARNITINE DECREASED [None]
  - HYPOGLYCAEMIA [None]
